FAERS Safety Report 6491954-0 (Version None)
Quarter: 2009Q4

REPORT INFORMATION
  Report Type: 
  Country: None (occurrence: None)
  Receive Date: 20091208
  Receipt Date: 20091125
  Transmission Date: 20100525
  Serious: Yes (Hospitalization, Other)
  Sender: FDA-Public Use
  Company Number: 8048011

PATIENT
  Sex: Male
  Weight: 64 kg

DRUGS (2)
  1. KEPPRA [Suspect]
     Dosage: (7500 MG, 15 COATED TABLETS ORAL)
     Route: 048
     Dates: start: 20090616, end: 20090616
  2. VALPROIC ACID [Suspect]
     Dosage: (7500 MG, 15 TABLETS ORAL)
     Route: 048
     Dates: start: 20090616, end: 20090616

REACTIONS (4)
  - MULTIPLE DRUG OVERDOSE INTENTIONAL [None]
  - SOMNOLENCE [None]
  - SUICIDE ATTEMPT [None]
  - TACHYCARDIA [None]
